FAERS Safety Report 9497835 (Version 1)
Quarter: 2013Q3

REPORT INFORMATION
  Report Type: Spontaneous
  Country: US (occurrence: None)
  Receive Date: 20130903
  Receipt Date: 20130903
  Transmission Date: 20140515
  Serious: No
  Sender: FDA-Public Use
  Company Number: None

PATIENT
  Age: 6 Year
  Sex: Male

DRUGS (1)
  1. DIASTAT [Suspect]
     Dosage: ONE TWIN PACK  PRN  RECTALLY
     Route: 054

REACTIONS (1)
  - Convulsion [None]
